FAERS Safety Report 19204073 (Version 2)
Quarter: 2021Q2

REPORT INFORMATION
  Report Type: Spontaneous
  Country: DE (occurrence: DE)
  Receive Date: 20210503
  Receipt Date: 20210504
  Transmission Date: 20210717
  Serious: Yes (Hospitalization)
  Sender: FDA-Public Use
  Company Number: DE-SUN PHARMACEUTICAL INDUSTRIES LTD-2021RR-293820

PATIENT
  Age: 56 Year
  Sex: Male

DRUGS (3)
  1. GEMCITABINE. [Suspect]
     Active Substance: GEMCITABINE
     Indication: HEPATOCELLULAR CARCINOMA
     Dosage: 1000 MILLIGRAM/SQ. METER, ON DAY 1
     Route: 065
  2. OXALIPLATIN. [Suspect]
     Active Substance: OXALIPLATIN
     Indication: HEPATOCELLULAR CARCINOMA
     Dosage: 85 MILLIGRAM/SQ. METER, ON DAY 2
     Route: 065
  3. BEVACIZUMAB. [Suspect]
     Active Substance: BEVACIZUMAB
     Indication: HEPATOCELLULAR CARCINOMA
     Dosage: 10 MILLIGRAM/KILOGRAM, ON DAY 1
     Route: 065

REACTIONS (4)
  - Pancytopenia [Unknown]
  - Renal disorder [Unknown]
  - Weight decreased [Unknown]
  - Neoplasm progression [Unknown]
